FAERS Safety Report 9686314 (Version 1)
Quarter: 2013Q4

REPORT INFORMATION
  Report Type: Report from Study
  Country: US (occurrence: US)
  Receive Date: 20131113
  Receipt Date: 20131113
  Transmission Date: 20140711
  Serious: Yes (Hospitalization)
  Sender: FDA-Public Use
  Company Number: US-JNJFOC-20131103390

PATIENT
  Age: 20 Year
  Sex: Female
  Weight: 61.7 kg

DRUGS (8)
  1. REMICADE [Suspect]
     Indication: CROHN^S DISEASE
     Route: 042
     Dates: start: 20090303, end: 20120308
  2. BUDESONIDE [Concomitant]
     Route: 065
  3. HUMIRA [Concomitant]
     Indication: CROHN^S DISEASE
     Route: 065
     Dates: start: 20130915
  4. HUMIRA [Concomitant]
     Indication: CROHN^S DISEASE
     Route: 065
     Dates: start: 20130826
  5. MUTIVITAMINS [Concomitant]
     Route: 065
  6. ZANTAC [Concomitant]
     Route: 065
  7. AZURETTE [Concomitant]
     Route: 065
  8. BOOST [Concomitant]
     Route: 065

REACTIONS (2)
  - Oesophageal ulcer [Recovered/Resolved]
  - Crohn^s disease [Recovered/Resolved]
